FAERS Safety Report 8889002 (Version 1)
Quarter: 2012Q4

REPORT INFORMATION
  Report Type: 
  Country: US (occurrence: US)
  Receive Date: 20121106
  Receipt Date: 20121106
  Transmission Date: 20130627
  Serious: Yes (Hospitalization, Other)
  Sender: FDA-Public Use
  Company Number: US-009507513-2012SP000275

PATIENT
  Sex: Female

DRUGS (5)
  1. PEGINTRON [Suspect]
     Indication: HEPATITIS C
     Dosage: UNK UNK, Unknown
     Route: 065
     Dates: start: 20110427, end: 20110608
  2. PEGINTRON [Suspect]
     Dosage: UNK UNK, Unknown
     Route: 065
     Dates: start: 20111201, end: 20120515
  3. REBETOL [Suspect]
     Indication: HEPATITIS C
     Dosage: UNK UNK, Unknown
     Route: 065
     Dates: start: 20110427, end: 20110608
  4. REBETOL [Suspect]
     Dosage: UNK UNK, Unknown
     Route: 065
     Dates: start: 20111201, end: 20120515
  5. INCIVEK [Suspect]
     Indication: HEPATITIS C
     Dosage: UNK UNK, Unknown
     Route: 065
     Dates: start: 20111201, end: 20120215

REACTIONS (15)
  - Anaemia [Unknown]
  - Nausea [Unknown]
  - Hypophagia [Unknown]
  - Influenza like illness [Unknown]
  - Pyrexia [Unknown]
  - Drug eruption [Unknown]
  - Hypoxia [Unknown]
  - Dehydration [Unknown]
  - Transfusion [Unknown]
  - Drug ineffective [Unknown]
  - Anaemia [Unknown]
  - Rash [Unknown]
  - Skin disorder [Unknown]
  - Malaise [Unknown]
  - Gait disturbance [Unknown]
